FAERS Safety Report 7833920-6 (Version None)
Quarter: 2011Q4

REPORT INFORMATION
  Report Type: 
  Country: None (occurrence: None)
  Receive Date: 20111024
  Receipt Date: 20111017
  Transmission Date: 20120403
  Serious: Yes (Other)
  Sender: FDA-Public Use
  Company Number: US-CELGENEUS-163-21880-11090083

PATIENT
  Sex: Male
  Weight: 78.542 kg

DRUGS (8)
  1. VITAMIN D [Concomitant]
     Indication: OSTEOPENIA
     Dosage: 5000 UNITS
     Route: 048
     Dates: start: 20110110
  2. DECADRON [Concomitant]
     Indication: MULTIPLE MYELOMA
     Route: 048
     Dates: start: 20101206
  3. AMBIEN [Concomitant]
     Indication: INSOMNIA
     Dosage: 5 MILLIGRAM
     Route: 048
     Dates: start: 20101213
  4. COUMADIN [Concomitant]
     Dosage: 5 MILLIGRAM
     Route: 048
     Dates: start: 20101222
  5. REVLIMID [Suspect]
     Indication: MULTIPLE MYELOMA
     Dosage: 10 MILLIGRAM
     Route: 048
     Dates: start: 20101206, end: 20110826
  6. SURFAK [Concomitant]
     Indication: CONSTIPATION
     Dosage: 240 MILLIGRAM
     Route: 048
     Dates: start: 20110809
  7. NEURONTIN [Concomitant]
     Dosage: 200 MILLIGRAM
     Route: 048
     Dates: start: 20110110
  8. NEXIUM [Concomitant]
     Dosage: 40 MILLIGRAM
     Route: 048
     Dates: start: 20101206

REACTIONS (1)
  - MENTAL STATUS CHANGES [None]
